FAERS Safety Report 7982715-1 (Version None)
Quarter: 2011Q4

REPORT INFORMATION
  Report Type: 
  Country: None (occurrence: None)
  Receive Date: 20111215
  Receipt Date: 20111202
  Transmission Date: 20120403
  Serious: Yes (Hospitalization)
  Sender: FDA-Public Use
  Company Number: CA-BRISTOL-MYERS SQUIBB COMPANY-15181787

PATIENT
  Age: 63 Year
  Sex: Male
  Weight: 81 kg

DRUGS (3)
  1. CLINDASOL [Concomitant]
     Indication: RASH
     Dosage: CLINDASOL CREAM 1%
     Dates: start: 20100120
  2. CETUXIMAB [Suspect]
     Indication: COLORECTAL CANCER METASTATIC
     Route: 042
     Dates: start: 20100111
  3. PLACEBO [Suspect]
     Indication: COLORECTAL CANCER METASTATIC
     Route: 048
     Dates: start: 20100111

REACTIONS (1)
  - CLOSTRIDIUM TEST POSITIVE [None]
